FAERS Safety Report 4578272-2 (Version None)
Quarter: 2005Q1

REPORT INFORMATION
  Report Type: 
  Country: None (occurrence: None)
  Receive Date: 20050209
  Receipt Date: 20050125
  Transmission Date: 20050727
  Serious: Yes (Hospitalization, Other)
  Sender: FDA-Public Use
  Company Number: USA040362004

PATIENT
  Age: 74 Year
  Sex: Female
  Weight: 77 kg

DRUGS (6)
  1. FORTEO [Suspect]
     Indication: OSTEOPOROSIS
     Dosage: 20 UG/1 DAY
     Dates: start: 20040219
  2. CALCIUM GLUCONATE [Concomitant]
  3. MULTIVITAMIN [Concomitant]
  4. LESCOL [Concomitant]
  5. BEXTRA [Concomitant]
  6. FOSAMAX [Concomitant]

REACTIONS (15)
  - ASTHENIA [None]
  - CHOLECYSTECTOMY [None]
  - CONFUSIONAL STATE [None]
  - DIZZINESS [None]
  - DYSSTASIA [None]
  - FALL [None]
  - FATIGUE [None]
  - HEPATIC CIRRHOSIS [None]
  - INJECTION SITE HAEMORRHAGE [None]
  - LIVER DISORDER [None]
  - LOBAR PNEUMONIA [None]
  - MEDICATION ERROR [None]
  - ORTHOSTATIC HYPOTENSION [None]
  - PHARMACEUTICAL PRODUCT COMPLAINT [None]
  - SPEECH DISORDER [None]
